FAERS Safety Report 23555418 (Version 1)
Quarter: 2024Q1

REPORT INFORMATION
  Report Type: Spontaneous
  Country: US (occurrence: US)
  Receive Date: 20240222
  Receipt Date: 20240222
  Transmission Date: 20240409
  Serious: No
  Sender: FDA-Public Use
  Company Number: US-BRISTOL-MYERS SQUIBB COMPANY-2024-029196

PATIENT
  Age: 69 Year
  Sex: Female
  Weight: 52.62 kg

DRUGS (1)
  1. REVLIMID [Suspect]
     Active Substance: LENALIDOMIDE
     Indication: Plasma cell myeloma
     Route: 048
     Dates: start: 20230101

REACTIONS (3)
  - Fatigue [Recovering/Resolving]
  - Constipation [Recovering/Resolving]
  - Brain fog [Recovering/Resolving]
